FAERS Safety Report 25643264 (Version 1)
Quarter: 2025Q3

REPORT INFORMATION
  Report Type: Report from Study
  Country: US (occurrence: US)
  Receive Date: 20250805
  Receipt Date: 20250805
  Transmission Date: 20251020
  Serious: No
  Sender: SUNOVION
  Company Number: US-SUMITOMO PHARMA SWITZERLAND GMBH-2024SPA005830

PATIENT
  Age: 70 Year
  Sex: Male

DRUGS (3)
  1. ORGOVYX [Suspect]
     Active Substance: RELUGOLIX
     Indication: Prostate cancer
     Dosage: 360 MG, SINGLE
     Route: 048
     Dates: start: 20241122, end: 20241122
  2. ORGOVYX [Suspect]
     Active Substance: RELUGOLIX
     Dosage: 120 MG, QD
     Route: 048
     Dates: start: 20241123
  3. XTANDI [Concomitant]
     Active Substance: ENZALUTAMIDE
     Indication: Prostate cancer
     Dosage: 160 MG, QD
     Dates: start: 20241122

REACTIONS (14)
  - Muscular weakness [Unknown]
  - Pain [Unknown]
  - Foot deformity [Unknown]
  - Eating disorder [Unknown]
  - Malaise [Unknown]
  - Decreased activity [Unknown]
  - Gait inability [Unknown]
  - Abdominal discomfort [Unknown]
  - Musculoskeletal stiffness [Unknown]
  - Back pain [Recovering/Resolving]
  - Pain in extremity [Unknown]
  - Diarrhoea [Unknown]
  - Product dose omission issue [Unknown]
  - Product dose confusion [Unknown]
